FAERS Safety Report 25386057 (Version 1)
Quarter: 2025Q2

REPORT INFORMATION
  Report Type: Spontaneous
  Country: KR (occurrence: KR)
  Receive Date: 20250602
  Receipt Date: 20250602
  Transmission Date: 20250716
  Serious: Yes (Other)
  Sender: GILEAD
  Company Number: KR-GILEAD-2025-0715391

PATIENT
  Sex: Male

DRUGS (6)
  1. VEKLURY [Suspect]
     Active Substance: REMDESIVIR
     Indication: COVID-19
     Dosage: 200 MG, QD
     Route: 065
     Dates: start: 20240330, end: 20240402
  2. PERAMIVIR [Suspect]
     Active Substance: PERAMIVIR
     Indication: Pneumonia
     Dosage: 300 MG, QD
     Route: 065
     Dates: start: 20240330, end: 20240331
  3. LEVOFLOXACIN [Suspect]
     Active Substance: LEVOFLOXACIN
     Indication: Pneumonia
     Dosage: 1 DOSAGE FORM, QD
     Route: 065
     Dates: start: 20240330, end: 20240330
  4. MEROPENEM [Suspect]
     Active Substance: MEROPENEM
     Indication: Pneumonia
     Route: 065
     Dates: start: 20240404, end: 20240407
  5. SULFAMETHOXAZOLE AND TRIMETHOPRIM [Suspect]
     Active Substance: SULFAMETHOXAZOLE\TRIMETHOPRIM
     Indication: Pneumonia
     Dosage: 1 DOSAGE FORM, QD
     Route: 065
     Dates: start: 20240403, end: 20240407
  6. PIPERACILLIN AND TAZOBACTAM [Suspect]
     Active Substance: PIPERACILLIN SODIUM\TAZOBACTAM SODIUM
     Indication: Pneumonia
     Route: 065
     Dates: start: 20240405, end: 20240407

REACTIONS (3)
  - Pseudomembranous colitis [Recovered/Resolved]
  - Clostridium difficile colitis [Recovered/Resolved]
  - Diarrhoea [Recovered/Resolved]

NARRATIVE: CASE EVENT DATE: 20240408
